FAERS Safety Report 10986997 (Version 2)
Quarter: 2015Q3

REPORT INFORMATION
  Report Type: Spontaneous
  Country: US (occurrence: US)
  Receive Date: 20150402
  Receipt Date: 20150928
  Transmission Date: 20151125
  Serious: Yes (Hospitalization)
  Sender: FDA-Public Use
  Company Number: AMAG201500153

PATIENT
  Age: 0 Day
  Sex: Male
  Weight: 1.9 kg

DRUGS (1)
  1. MAKENA [Suspect]
     Active Substance: HYDROXYPROGESTERONE CAPROATE
     Indication: EXPOSURE DURING PREGNANCY
     Dosage: UNK

REACTIONS (2)
  - Bradycardia foetal [Unknown]
  - Premature baby [Unknown]

NARRATIVE: CASE EVENT DATE: 20150222
